FAERS Safety Report 20279112 (Version 1)
Quarter: 2022Q1

REPORT INFORMATION
  Report Type: Spontaneous
  Country: NL (occurrence: NL)
  Receive Date: 20220103
  Receipt Date: 20220103
  Transmission Date: 20220424
  Serious: Yes (Hospitalization)
  Sender: FDA-Public Use
  Company Number: NL-002147023-PHHY2019NL225552

PATIENT
  Sex: Female

DRUGS (1)
  1. OXYCODONE [Suspect]
     Active Substance: OXYCODONE
     Indication: Pain in extremity
     Dosage: UNK
     Route: 065

REACTIONS (7)
  - Fatigue [Recovered/Resolved]
  - Dementia [Recovered/Resolved]
  - Soliloquy [Recovered/Resolved]
  - Feeding disorder [Recovered/Resolved]
  - Confusional state [Recovered/Resolved]
  - Fear [Recovered/Resolved]
  - Depression [Recovered/Resolved]
